FAERS Safety Report 6909460-5 (Version None)
Quarter: 2010Q3

REPORT INFORMATION
  Report Type: 
  Country: None (occurrence: None)
  Receive Date: 20100805
  Receipt Date: 20100727
  Transmission Date: 20110219
  Serious: Yes (Death, Other)
  Sender: FDA-Public Use
  Company Number: CY-PFIZER INC-2010094516

PATIENT

DRUGS (2)
  1. AZITHROMYCIN [Suspect]
     Indication: PNEUMONIA LEGIONELLA
     Dosage: UNK
  2. RIFAMPICIN [Suspect]
     Indication: PNEUMONIA LEGIONELLA
     Dosage: UNK

REACTIONS (7)
  - DRUG INEFFECTIVE [None]
  - HYPOKALAEMIA [None]
  - HYPONATRAEMIA [None]
  - HYPOTENSION [None]
  - LEUKOCYTOSIS [None]
  - MULTI-ORGAN FAILURE [None]
  - THROMBOCYTOPENIA [None]
